FAERS Safety Report 9742174 (Version 2)
Quarter: 2013Q4

REPORT INFORMATION
  Report Type: Report from Study
  Country: KR (occurrence: KR)
  Receive Date: 20131210
  Receipt Date: 20131216
  Transmission Date: 20140711
  Serious: Yes (Other)
  Sender: FDA-Public Use
  Company Number: KR-MERCK-1312KOR004180

PATIENT
  Age: 63 Year
  Sex: Female
  Weight: 62.6 kg

DRUGS (12)
  1. PREPENEM [Concomitant]
     Indication: PYREXIA
     Dosage: 500 MG, QID
     Route: 042
     Dates: start: 20130603, end: 20130621
  2. TARGOCID [Concomitant]
     Indication: PYREXIA
     Dosage: 354 MG, BID
     Route: 042
     Dates: start: 20130528, end: 20130616
  3. TRANSAMIN [Concomitant]
     Indication: BRONCHOPULMONARY ASPERGILLOSIS
     Dosage: 250 MG, QID
     Route: 048
     Dates: start: 20130613, end: 20130616
  4. CODEINE [Concomitant]
     Indication: BRONCHOPULMONARY ASPERGILLOSIS
     Dosage: 20 MG, TID
     Route: 048
     Dates: start: 20130612
  5. TRANEXAMIC ACID [Concomitant]
     Indication: BRONCHOPULMONARY ASPERGILLOSIS
     Dosage: 500 MG, QID
     Route: 042
     Dates: start: 20130616, end: 20130703
  6. MAXIPIME [Concomitant]
     Indication: BRONCHOPULMONARY ASPERGILLOSIS
     Dosage: 2 G, TID
     Route: 042
     Dates: start: 20130621, end: 20130706
  7. MAXIPIME [Concomitant]
     Indication: PYREXIA
  8. POSACONAZOLE [Suspect]
     Indication: ANTIFUNGAL PROPHYLAXIS
     Dosage: 200 MG, TID
     Route: 048
     Dates: start: 20130508, end: 20130618
  9. DIABEX [Concomitant]
     Indication: DIABETES MELLITUS
     Dosage: 500 MG DAILY
     Route: 048
     Dates: start: 20130503
  10. COZAAR TABLET (LOSARTAN POTASSIUM) [Concomitant]
     Indication: HYPERTENSION
     Dosage: 100 MG DAILY
     Route: 048
     Dates: start: 20130503
  11. AMARYL [Concomitant]
     Indication: DIABETES MELLITUS
     Dosage: 2 MG, BID
     Route: 048
     Dates: start: 20130507
  12. NORVASC [Concomitant]
     Indication: HYPERTENSION
     Dosage: 5 MG DAILY
     Route: 048
     Dates: start: 20130516

REACTIONS (1)
  - Bronchopulmonary aspergillosis [Recovering/Resolving]
